FAERS Safety Report 7879313-7 (Version None)
Quarter: 2011Q4

REPORT INFORMATION
  Report Type: 
  Country: None (occurrence: None)
  Receive Date: 20111101
  Receipt Date: 20111018
  Transmission Date: 20120403
  Serious: Yes (Hospitalization)
  Sender: FDA-Public Use
  Company Number: ES-ELI_LILLY_AND_COMPANY-ES201108007844

PATIENT
  Sex: Male
  Weight: 100 kg

DRUGS (4)
  1. METFORMIN HCL [Concomitant]
     Indication: DIABETES MELLITUS
     Dosage: 300 MG, QD
     Route: 048
  2. GABAPENTIN [Concomitant]
     Indication: DIABETES MELLITUS
     Dosage: UNK, TID
     Route: 048
  3. GLICAZIDA [Concomitant]
     Indication: DIABETES MELLITUS
     Dosage: 30 MG, QD
     Route: 048
  4. FORTEO [Suspect]
     Indication: OSTEOPOROSIS
     Dosage: 20 UG, QD
     Route: 058
     Dates: start: 20110122, end: 20110728

REACTIONS (1)
  - GALLBLADDER DISORDER [None]
